FAERS Safety Report 22109636 (Version 3)
Quarter: 2023Q2

REPORT INFORMATION
  Report Type: Spontaneous
  Country: HU (occurrence: HU)
  Receive Date: 20230317
  Receipt Date: 20230413
  Transmission Date: 20230722
  Serious: Yes (Other)
  Sender: FDA-Public Use
  Company Number: HU-002147023-NVSC2023HU056260

PATIENT

DRUGS (9)
  1. RUXOLITINIB [Suspect]
     Active Substance: RUXOLITINIB
     Indication: Polycythaemia vera
     Dosage: 10 MG, BID (2X)
     Route: 065
     Dates: start: 201904
  2. RUXOLITINIB [Suspect]
     Active Substance: RUXOLITINIB
     Dosage: 15 MG, BID (2X)
     Route: 065
     Dates: start: 202002
  3. RUXOLITINIB [Suspect]
     Active Substance: RUXOLITINIB
     Dosage: 20 MG, BID (2X)
     Route: 065
     Dates: start: 202110
  4. RUXOLITINIB [Suspect]
     Active Substance: RUXOLITINIB
     Dosage: 15 MG, BID (2X)
     Route: 065
     Dates: start: 202203
  5. RUXOLITINIB [Suspect]
     Active Substance: RUXOLITINIB
     Dosage: 10 MG, BID
     Route: 065
     Dates: start: 202206
  6. RUXOLITINIB [Suspect]
     Active Substance: RUXOLITINIB
     Dosage: 15 MG, QOD
     Route: 065
     Dates: start: 202209
  7. THROMBOREDUCTIN [Concomitant]
     Indication: Thrombocytosis
     Dosage: 2 DOSAGE FORM, QD
     Route: 065
     Dates: start: 201706, end: 20190423
  8. HYDROXYUREA [Concomitant]
     Active Substance: HYDROXYUREA
     Indication: Product used for unknown indication
     Dosage: 1 DOSAGE FORM, QD
     Route: 065
     Dates: end: 20190423
  9. HYDROXYUREA [Concomitant]
     Active Substance: HYDROXYUREA
     Dosage: UNK
     Route: 065
     Dates: start: 202112

REACTIONS (14)
  - Anaemia [Recovered/Resolved]
  - Anaemia [Recovering/Resolving]
  - Chronic myeloid leukaemia [Recovering/Resolving]
  - Blood creatinine increased [Recovering/Resolving]
  - Haemoglobin increased [Unknown]
  - Haemoglobin increased [Recovered/Resolved]
  - Blood lactate dehydrogenase increased [Unknown]
  - Blood lactate dehydrogenase increased [Recovered/Resolved]
  - Inappropriate schedule of product administration [Unknown]
  - Platelet count increased [Recovering/Resolving]
  - Platelet count increased [Recovered/Resolved]
  - White blood cell count increased [Recovered/Resolved]
  - White blood cell count increased [Recovering/Resolving]
  - White blood cell count increased [Recovered/Resolved]

NARRATIVE: CASE EVENT DATE: 20200201
